FAERS Safety Report 12707565 (Version 1)
Quarter: 2016Q3

REPORT INFORMATION
  Report Type: Spontaneous
  Country: US (occurrence: US)
  Receive Date: 20160901
  Receipt Date: 20160901
  Transmission Date: 20161109
  Serious: No
  Sender: FDA-Public Use
  Company Number: US-TARO-2015TAR00904

PATIENT
  Age: 3 Year
  Sex: Male
  Weight: 17.23 kg

DRUGS (1)
  1. DESONIDE OINTMENT USP 0.05% [Suspect]
     Active Substance: DESONIDE
     Indication: ECZEMA
     Dosage: UNK, 2X/DAY
     Route: 061
     Dates: start: 20150923

REACTIONS (1)
  - Urticaria [Recovered/Resolved]

NARRATIVE: CASE EVENT DATE: 20150924
